FAERS Safety Report 8825956 (Version 3)
Quarter: 2012Q4

REPORT INFORMATION
  Report Type: Report from Study
  Country: DE (occurrence: DE)
  Receive Date: 20121005
  Receipt Date: 20121120
  Transmission Date: 20130627
  Serious: Yes (Death, Hospitalization)
  Sender: FDA-Public Use
  Company Number: DE-ACTELION-A-US2012-72384

PATIENT
  Age: 56 Year
  Sex: Female

DRUGS (1)
  1. VENTAVIS [Suspect]
     Indication: PULMONARY ARTERIAL HYPERTENSION
     Dosage: 2.5 ug, q4hrs
     Route: 055
     Dates: start: 20120824, end: 20120926

REACTIONS (6)
  - Pulmonary arterial hypertension [Fatal]
  - Terminal state [Fatal]
  - Myocardial oedema [Not Recovered/Not Resolved]
  - Right ventricular failure [Unknown]
  - Oedema peripheral [Not Recovered/Not Resolved]
  - Dyspnoea [Unknown]
